FAERS Safety Report 4611685-9 (Version None)
Quarter: 2005Q2

REPORT INFORMATION
  Report Type: 
  Country: None (occurrence: None)
  Receive Date: 20050311
  Receipt Date: 20041130
  Transmission Date: 20051028
  Serious: No
  Sender: FDA-Public Use
  Company Number: 2004-BP-13271BP

PATIENT
  Age: 51 Year
  Sex: Male

DRUGS (10)
  1. SPIRIVA [Suspect]
     Indication: ASTHMA
     Dosage: 18 MCG (18 MCG), IH
     Route: 055
     Dates: start: 20040815
  2. UNIPHYL [Concomitant]
  3. ALLEGRA D (ALLEGRA-D SLOW RELEASE) [Concomitant]
  4. COMBIVENT [Concomitant]
  5. ADVAIR DISKUS (SERETIDE MITE) [Concomitant]
  6. XOPENEX [Concomitant]
  7. SINGULAIR [Concomitant]
  8. NASACORT AQ [Concomitant]
  9. ANTIHISTATAMINES [Concomitant]
  10. SUDAFED (PSEUDOEPHEDRINE HYDROCHLORIDE) [Concomitant]

REACTIONS (2)
  - PRURITUS [None]
  - SKIN BURNING SENSATION [None]
